FAERS Safety Report 18585464 (Version 1)
Quarter: 2020Q4

REPORT INFORMATION
  Report Type: Spontaneous
  Country: US (occurrence: US)
  Receive Date: 20201207
  Receipt Date: 20201207
  Transmission Date: 20210114
  Serious: Yes (Death)
  Sender: FDA-Public Use
  Company Number: US-PFIZER INC-2020329973

PATIENT
  Age: 55 Year
  Sex: Male

DRUGS (1)
  1. IBRANCE [Suspect]
     Active Substance: PALBOCICLIB
     Indication: LARYNGEAL CANCER
     Dosage: 125 MG

REACTIONS (3)
  - Death [Fatal]
  - Off label use [Unknown]
  - Neoplasm progression [Unknown]
